FAERS Safety Report 13741747 (Version 1)
Quarter: 2017Q3

REPORT INFORMATION
  Report Type: Spontaneous
  Country: US (occurrence: US)
  Receive Date: 20170711
  Receipt Date: 20170711
  Transmission Date: 20171127
  Serious: No
  Sender: FDA-Public Use
  Company Number: None

PATIENT
  Age: 50 Year
  Sex: Female

DRUGS (1)
  1. IBRANCE [Suspect]
     Active Substance: PALBOCICLIB
     Dosage: 125MG QD X 21D ON TH ORAL
     Route: 048

REACTIONS (5)
  - Asthenia [None]
  - Disturbance in attention [None]
  - Fatigue [None]
  - Decreased appetite [None]
  - Memory impairment [None]

NARRATIVE: CASE EVENT DATE: 20170627
